FAERS Safety Report 16031872 (Version 34)
Quarter: 2022Q1

REPORT INFORMATION
  Report Type: Spontaneous
  Country: US (occurrence: US)
  Receive Date: 20190304
  Receipt Date: 20220314
  Transmission Date: 20220423
  Serious: Yes (Other)
  Sender: FDA-Public Use
  Company Number: US-PFIZER INC-2019081122

PATIENT
  Age: 72 Year
  Sex: Female
  Weight: 88 kg

DRUGS (36)
  1. IBRANCE [Suspect]
     Active Substance: PALBOCICLIB
     Indication: Breast cancer female
     Dosage: 100 MG, CYCLIC (ONCE A DAY FOR 21 DAYS THEN OFF 7 DAYS/DAILY FOR 14 DAYS)
     Route: 048
     Dates: start: 20180706, end: 201807
  2. IBRANCE [Suspect]
     Active Substance: PALBOCICLIB
     Dosage: 100 MG, CYCLIC (DAILY, 2 WEEKS ON, 1 WEEK OFF)
     Route: 048
     Dates: start: 20180801
  3. IBRANCE [Suspect]
     Active Substance: PALBOCICLIB
     Dosage: 100 MG, CYCLIC (14 DAYS ON, 14 DAYS OFF)
     Route: 048
  4. IBRANCE [Suspect]
     Active Substance: PALBOCICLIB
     Dosage: 100 MG, DAILY (2 WEEKS ON 2 WEEKS OFF)
     Route: 048
  5. IBRANCE [Suspect]
     Active Substance: PALBOCICLIB
     Dosage: 100 MG, CYCLIC (TAKE 100MG ONCE DAILY 2 WEEKS ON 2 WEEKS OFF)
  6. FASLODEX [Concomitant]
     Active Substance: FULVESTRANT
     Indication: Breast cancer female
     Dosage: 250 MG, UNK (250 MG SHOTS, ONE IN EACH HIP)
     Dates: start: 2018, end: 2018
  7. FASLODEX [Concomitant]
     Active Substance: FULVESTRANT
     Dosage: 500 MG, MONTHLY (EVERY 4 WEEKS)
     Route: 030
     Dates: start: 20180801
  8. XGEVA [Concomitant]
     Active Substance: DENOSUMAB
     Indication: Metastases to bone
     Dosage: 120 MG, SINGLE
     Dates: start: 20180829
  9. BIOTIN [Concomitant]
     Active Substance: BIOTIN
     Dosage: 1000 MG, 2X/DAY
  10. VITAMIN E [Concomitant]
     Active Substance: .ALPHA.-TOCOPHEROL
     Dosage: 1000 MG, 2X/DAY
  11. EMLA [Concomitant]
     Active Substance: LIDOCAINE\PRILOCAINE
     Dosage: UNK
  12. GRANIX [Concomitant]
     Active Substance: TBO-FILGRASTIM
     Dosage: UNK
  13. ONDANSETRON HCL [Concomitant]
     Active Substance: ONDANSETRON HYDROCHLORIDE
     Dosage: UNK
  14. PEGFILGRASTIM [Concomitant]
     Active Substance: PEGFILGRASTIM
     Dosage: UNK
  15. PROCHLORPERAZINE MALEATE [Concomitant]
     Active Substance: PROCHLORPERAZINE MALEATE
     Dosage: UNK
  16. TRAMADOL HCL [Concomitant]
     Active Substance: TRAMADOL HYDROCHLORIDE
     Dosage: UNK
  17. ALPRAZOLAM [Concomitant]
     Active Substance: ALPRAZOLAM
     Dosage: UNK
  18. AMLODIPINE BESYLATE [Concomitant]
     Active Substance: AMLODIPINE BESYLATE
     Dosage: UNK
  19. AMITRIPTYLINE [Concomitant]
     Active Substance: AMITRIPTYLINE
     Dosage: UNK
  20. ANASTROZOLE [Concomitant]
     Active Substance: ANASTROZOLE
     Dosage: UNK
  21. ANUSOL-HC [HYDROCORTISONE ACETATE] [Concomitant]
     Dosage: UNK
  22. VITAMIN B12 [Concomitant]
     Active Substance: CYANOCOBALAMIN
     Dosage: UNK
  23. C 1000 [Concomitant]
     Dosage: UNK
  24. CO Q 10 [UBIDECARENONE] [Concomitant]
     Dosage: UNK
  25. CRESTOR [Concomitant]
     Active Substance: ROSUVASTATIN CALCIUM
     Dosage: UNK
  26. CYCLOBENZAPRINE HYDROCHLORIDE [Concomitant]
     Active Substance: CYCLOBENZAPRINE HYDROCHLORIDE
     Dosage: UNK
  27. DIPHENHYDRAMINE HYDROCHLORIDE [Concomitant]
     Active Substance: DIPHENHYDRAMINE HYDROCHLORIDE
     Dosage: UNK
  28. FISH OIL [Concomitant]
     Active Substance: FISH OIL
     Dosage: UNK
  29. ACETAMINOPHEN\HYDROCODONE [Concomitant]
     Active Substance: ACETAMINOPHEN\HYDROCODONE
     Dosage: UNK
  30. IBUPROFEN [Concomitant]
     Active Substance: IBUPROFEN
     Dosage: UNK
  31. LEVOTHYROXINE SODIUM [Concomitant]
     Active Substance: LEVOTHYROXINE SODIUM
     Dosage: UNK
  32. LOSARTAN POTASSIUM [Concomitant]
     Active Substance: LOSARTAN POTASSIUM
     Dosage: UNK
  33. NADOLOL [Concomitant]
     Active Substance: NADOLOL
     Dosage: UNK
  34. VALACYCLOVIR HYDROCHLORIDE [Concomitant]
     Active Substance: VALACYCLOVIR HYDROCHLORIDE
     Dosage: UNK
  35. VITAMIN D3 [Concomitant]
     Active Substance: CHOLECALCIFEROL
     Dosage: UNK
  36. PREDNISONE [Concomitant]
     Active Substance: PREDNISONE
     Dosage: UNK

REACTIONS (37)
  - Neutropenia [Unknown]
  - Off label use [Unknown]
  - Product use issue [Unknown]
  - Neoplasm progression [Unknown]
  - Alopecia [Not Recovered/Not Resolved]
  - Dry skin [Not Recovered/Not Resolved]
  - Skin wrinkling [Unknown]
  - Lymphoedema [Unknown]
  - Feeling abnormal [Recovered/Resolved]
  - Fatigue [Unknown]
  - Skin exfoliation [Unknown]
  - Hormone level abnormal [Unknown]
  - Malaise [Unknown]
  - Arthralgia [Unknown]
  - Joint swelling [Unknown]
  - Thinking abnormal [Unknown]
  - Joint injury [Unknown]
  - Hypoacusis [Unknown]
  - Memory impairment [Unknown]
  - White blood cell count decreased [Unknown]
  - White blood cell disorder [Unknown]
  - Headache [Unknown]
  - Visual impairment [Unknown]
  - Ear pain [Unknown]
  - Ear disorder [Unknown]
  - Asthenia [Unknown]
  - Cerebral disorder [Unknown]
  - Neoplasm [Unknown]
  - Oropharyngeal discomfort [Unknown]
  - Carpal tunnel syndrome [Unknown]
  - Blood oestrogen increased [Unknown]
  - Lip pain [Unknown]
  - Hypermagnesaemia [Recovered/Resolved]
  - Illness [Unknown]
  - Hypoacusis [Unknown]
  - Gastroenteritis viral [Unknown]
  - Urticaria [Unknown]

NARRATIVE: CASE EVENT DATE: 20180101
